FAERS Safety Report 4614004-7 (Version None)
Quarter: 2005Q1

REPORT INFORMATION
  Report Type: 
  Country: None (occurrence: None)
  Receive Date: 20050321
  Receipt Date: 20050309
  Transmission Date: 20050727
  Serious: Yes (Congenital Anomaly)
  Sender: FDA-Public Use
  Company Number: SE-ROCHE-397864

PATIENT
  Sex: Female
  Weight: 3 kg

DRUGS (4)
  1. CELLCEPT [Suspect]
     Dosage: DOSAGE REGIMEN REPORTED AS 1+0+1
     Dates: start: 20000615, end: 20040330
  2. TACROLIMUS [Suspect]
     Dosage: DOSAGE REGIMEN REPORTED AS 3+0+3
     Dates: start: 20000615
  3. PREDNISOLONE [Suspect]
     Dosage: DOSAGE REGIMEN REPORTED AS 1+0+0
     Dates: start: 20000615
  4. LEVAXIN [Concomitant]
     Indication: HYPOTHYROIDISM
     Dosage: DOSAGE REGIMEN REPORTED AS 1+0+0

REACTIONS (10)
  - ARTERIAL GRAFT [None]
  - CAESAREAN SECTION [None]
  - CARDIAC FAILURE [None]
  - CONGENITAL ANOMALY [None]
  - CONGENITAL CARDIOVASCULAR ANOMALY [None]
  - CONGENITAL MUSCULOSKELETAL ANOMALY [None]
  - DRUG EXPOSURE DURING PREGNANCY [None]
  - EXTERNAL AUDITORY CANAL ATRESIA [None]
  - HEART DISEASE CONGENITAL [None]
  - LIMB MALFORMATION [None]
